FAERS Safety Report 5074525-2 (Version None)
Quarter: 2006Q3

REPORT INFORMATION
  Report Type: 
  Country: None (occurrence: None)
  Receive Date: 20060714
  Receipt Date: 20060505
  Transmission Date: 20061208
  Serious: No
  Sender: FDA-Public Use
  Company Number: 2006SP001961

PATIENT
  Age: 64 Year
  Sex: Female

DRUGS (3)
  1. LUNESTA [Suspect]
     Dosage: 3 MG;PRN;ORAL
     Route: 048
     Dates: start: 20051101
  2. WELLBUTRIN [Concomitant]
  3. ESTROGENS CONJUGATED [Concomitant]

REACTIONS (1)
  - DRUG EFFECT DECREASED [None]
